FAERS Safety Report 9687937 (Version 1)
Quarter: 2013Q4

REPORT INFORMATION
  Report Type: Spontaneous
  Country: US (occurrence: None)
  Receive Date: 20131113
  Receipt Date: 20131113
  Transmission Date: 20140711
  Serious: Yes (Death, Hospitalization)
  Sender: FDA-Public Use
  Company Number: None

PATIENT
  Age: 60 Year
  Sex: Male
  Weight: 165 kg

DRUGS (2)
  1. XARELTO [Suspect]
     Indication: CEREBROVASCULAR ACCIDENT PROPHYLAXIS
     Dosage: 1 PILL QD ORAL
     Route: 048
  2. XARELTO [Suspect]
     Indication: ATRIAL FIBRILLATION
     Dosage: 1 PILL QD ORAL
     Route: 048

REACTIONS (5)
  - Hypertension [None]
  - Basal ganglia haemorrhage [None]
  - Cerebrovascular accident [None]
  - Oxygen saturation decreased [None]
  - Dysarthria [None]
